FAERS Safety Report 9908252 (Version 1)
Quarter: 2014Q1

REPORT INFORMATION
  Report Type: Spontaneous
  Country: US (occurrence: US)
  Receive Date: 20140219
  Receipt Date: 20140219
  Transmission Date: 20141002
  Serious: No
  Sender: FDA-Public Use
  Company Number: US-009507513-1402USA008178

PATIENT
  Age: 34 Year
  Sex: Female
  Weight: 82.54 kg

DRUGS (1)
  1. NUVARING [Suspect]
     Indication: CONTRACEPTION
     Dosage: UNK, AS DIRECTED, STRENGTH-.015/.12
     Route: 067
     Dates: start: 201306, end: 201402

REACTIONS (1)
  - Unintended pregnancy [Unknown]
